FAERS Safety Report 4924073-2 (Version None)
Quarter: 2006Q1

REPORT INFORMATION
  Report Type: 
  Country: None (occurrence: None)
  Receive Date: 20060221
  Receipt Date: 20060210
  Transmission Date: 20060701
  Serious: Yes (Hospitalization, Other)
  Sender: FDA-Public Use
  Company Number: HQWYE793201DEC05

PATIENT
  Age: 76 Year
  Sex: Male
  Weight: 79.4 kg

DRUGS (14)
  1. MYLOTARG [Suspect]
     Indication: ACUTE MYELOID LEUKAEMIA
     Dosage: A SINGLE 6 MG DOSE, INTRAVENOUS
     Route: 042
     Dates: start: 20051128, end: 20051128
  2. MYLOTARG [Suspect]
     Indication: MYELODYSPLASTIC SYNDROME
     Dosage: A SINGLE 6 MG DOSE, INTRAVENOUS
     Route: 042
     Dates: start: 20051128, end: 20051128
  3. ARSENIC TRIOXIDE                     (ARSENIC TRIOXIDE) [Suspect]
     Indication: ACUTE MYELOID LEUKAEMIA
     Dosage: A SINGLE 20 MG DOSE, INTRAVENOUS; 20 MG 1X PER 1 DAY, INTRAVENOUS
     Route: 042
     Dates: start: 20051121, end: 20051124
  4. ARSENIC TRIOXIDE                     (ARSENIC TRIOXIDE) [Suspect]
     Indication: MYELODYSPLASTIC SYNDROME
     Dosage: A SINGLE 20 MG DOSE, INTRAVENOUS; 20 MG 1X PER 1 DAY, INTRAVENOUS
     Route: 042
     Dates: start: 20051121, end: 20051124
  5. ARSENIC TRIOXIDE                     (ARSENIC TRIOXIDE) [Suspect]
     Indication: ACUTE MYELOID LEUKAEMIA
     Dosage: A SINGLE 20 MG DOSE, INTRAVENOUS; 20 MG 1X PER 1 DAY, INTRAVENOUS
     Route: 042
     Dates: start: 20051128, end: 20051128
  6. ARSENIC TRIOXIDE                     (ARSENIC TRIOXIDE) [Suspect]
     Indication: MYELODYSPLASTIC SYNDROME
     Dosage: A SINGLE 20 MG DOSE, INTRAVENOUS; 20 MG 1X PER 1 DAY, INTRAVENOUS
     Route: 042
     Dates: start: 20051128, end: 20051128
  7. ATENOLOL [Concomitant]
  8. SYNTHROOID (LEVOTHYROXINE SODIUM) [Concomitant]
  9. PRILOSEC [Concomitant]
  10. PROSCAR [Concomitant]
  11. MULTIVITAMINS, PLAIN (MULTIVITAMINS PLAIN) [Concomitant]
  12. LOTREL [Concomitant]
  13. FLOMAX [Concomitant]
  14. LEVAQUIN [Concomitant]

REACTIONS (2)
  - FEBRILE NEUTROPENIA [None]
  - WHITE BLOOD CELL COUNT DECREASED [None]
